FAERS Safety Report 8873244 (Version 3)
Quarter: 2012Q4

REPORT INFORMATION
  Report Type: 
  Country: US (occurrence: US)
  Receive Date: 20121029
  Receipt Date: 20121107
  Transmission Date: 20130627
  Serious: Yes (Death)
  Sender: FDA-Public Use
  Company Number: US-PFIZER INC-2012269027

PATIENT
  Age: 76 Year
  Sex: Male

DRUGS (2)
  1. TORISEL [Suspect]
     Indication: CARCINOMA KIDNEY
     Dosage: 25 mg, UNK
  2. TORISEL [Suspect]
     Indication: RENAL CELL CARCINOMA

REACTIONS (2)
  - Disease progression [Fatal]
  - Renal cell carcinoma [Fatal]
